FAERS Safety Report 6451508-9 (Version None)
Quarter: 2009Q4

REPORT INFORMATION
  Report Type: 
  Country: None (occurrence: None)
  Receive Date: 20091123
  Receipt Date: 20090818
  Transmission Date: 20100525
  Serious: No
  Sender: FDA-Public Use
  Company Number: US-BRISTOL-MYERS SQUIBB COMPANY-14744734

PATIENT
  Age: 76 Year
  Sex: Female
  Weight: 76 kg

DRUGS (2)
  1. AVALIDE [Suspect]
     Indication: HYPERTENSION
     Dosage: AT PRESENT HER DOSE IS 150/12.5MG DAILY.
     Dates: start: 19960101
  2. TOPROL-XL [Concomitant]

REACTIONS (1)
  - RASH PRURITIC [None]
